FAERS Safety Report 16835993 (Version 1)
Quarter: 2019Q3

REPORT INFORMATION
  Report Type: Report from Study
  Country: DO (occurrence: DO)
  Receive Date: 20190920
  Receipt Date: 20190920
  Transmission Date: 20191005
  Serious: Yes (Other)
  Sender: FDA-Public Use
  Company Number: PHHY2019DO219222

PATIENT
  Age: 62 Year
  Sex: Male

DRUGS (1)
  1. VYMADA [Suspect]
     Active Substance: SACUBITRIL\VALSARTAN
     Indication: PRODUCT USED FOR UNKNOWN INDICATION
     Dosage: 50 MG(SACUBITRIL 24MG AND VALSARTAN 26MG), UNK
     Route: 065

REACTIONS (2)
  - Cerebrovascular accident [Unknown]
  - Dysstasia [Unknown]
